FAERS Safety Report 9032112 (Version 1)
Quarter: 2013Q1

REPORT INFORMATION
  Report Type: Report from Study
  Country: US (occurrence: US)
  Receive Date: 20130122
  Receipt Date: 20130122
  Transmission Date: 20140127
  Serious: Yes (Death, Hospitalization)
  Sender: FDA-Public Use
  Company Number: US-ACTELION-A-NJ2012-65367

PATIENT
  Age: 83 Year
  Sex: Male

DRUGS (4)
  1. TRACLEER [Suspect]
     Indication: PULMONARY ARTERIAL HYPERTENSION
     Dosage: UNK
     Route: 048
  2. TRACLEER [Suspect]
     Dosage: UNK
     Route: 048
  3. AGGRENOX [Concomitant]
  4. COUMADIN [Concomitant]

REACTIONS (7)
  - Death [Fatal]
  - Pneumonia [Unknown]
  - Cardiac failure congestive [Unknown]
  - Pleural effusion [Recovered/Resolved]
  - Pulmonary hypertension [Unknown]
  - Dyspnoea [Unknown]
  - Drug dose omission [Unknown]
